FAERS Safety Report 7744327-4 (Version None)
Quarter: 2011Q3

REPORT INFORMATION
  Report Type: 
  Country: None (occurrence: None)
  Receive Date: 20110912
  Receipt Date: 20110902
  Transmission Date: 20111222
  Serious: Yes (Other)
  Sender: FDA-Public Use
  Company Number: US-ASTRAZENECA-2006UW14560

PATIENT
  Age: 78 Year
  Sex: Female
  Weight: 93 kg

DRUGS (12)
  1. ARIMIDEX [Suspect]
     Indication: BREAST CANCER FEMALE
     Route: 048
     Dates: start: 20060125, end: 20070101
  2. CO-Q10 [Concomitant]
  3. CITRACAL [Concomitant]
     Route: 048
  4. SYNTHROID [Concomitant]
     Indication: HYPOTHYROIDISM
     Route: 048
  5. VITAMIN E [Concomitant]
  6. PROTEGRA ANTIOXIDANT [Concomitant]
  7. FASLODEX [Suspect]
     Indication: BREAST CANCER
     Route: 030
     Dates: start: 20070201, end: 20101101
  8. COUMADIN [Concomitant]
     Indication: COAGULOPATHY
     Dosage: ONCE
     Route: 048
  9. VITAMIN TAB [Concomitant]
     Dosage: ONCE
     Route: 048
  10. LIPITOR [Concomitant]
     Route: 048
     Dates: start: 20060407, end: 20060619
  11. ZETIA [Concomitant]
     Dates: start: 20060711
  12. FISH OIL [Concomitant]
     Dosage: ONCE
     Route: 048

REACTIONS (38)
  - RESTLESS LEGS SYNDROME [None]
  - OROPHARYNGEAL PAIN [None]
  - DYSPHAGIA [None]
  - MUSCULOSKELETAL CHEST PAIN [None]
  - RASH [None]
  - ORAL PAIN [None]
  - BACK PAIN [None]
  - OROPHARYNGEAL BLISTERING [None]
  - GINGIVAL DISORDER [None]
  - MUSCLE SPASMS [None]
  - COUGH [None]
  - SKIN MASS [None]
  - DRUG INTOLERANCE [None]
  - FATIGUE [None]
  - FORMICATION [None]
  - ENURESIS [None]
  - NAIL DYSTROPHY [None]
  - MUSCLE TWITCHING [None]
  - BLADDER DISORDER [None]
  - JOINT STIFFNESS [None]
  - INSOMNIA [None]
  - HEARING IMPAIRED [None]
  - GINGIVAL SWELLING [None]
  - VISUAL IMPAIRMENT [None]
  - TRACHEAL PAIN [None]
  - NAUSEA [None]
  - GAIT DISTURBANCE [None]
  - DRY MOUTH [None]
  - BODY HEIGHT DECREASED [None]
  - ORAL MUCOSAL EXFOLIATION [None]
  - PEMPHIGOID [None]
  - EPISTAXIS [None]
  - WEIGHT DECREASED [None]
  - ABDOMINAL PAIN [None]
  - PHARYNGEAL OEDEMA [None]
  - EATING DISORDER [None]
  - PAIN IN EXTREMITY [None]
  - ARTHRALGIA [None]
